FAERS Safety Report 6054947-3 (Version None)
Quarter: 2009Q1

REPORT INFORMATION
  Report Type: 
  Country: None (occurrence: None)
  Receive Date: 20090128
  Receipt Date: 20090126
  Transmission Date: 20090719
  Serious: Yes (Death)
  Sender: FDA-Public Use
  Company Number: PHHY2009JP02688

PATIENT
  Sex: Male

DRUGS (2)
  1. EXJADE [Suspect]
     Indication: IRON OVERLOAD
     Dosage: 20 MG/KG, QD
     Route: 048
     Dates: start: 20080717
  2. EXJADE [Suspect]
     Dosage: 30 MG/KG
     Route: 048
     Dates: start: 20081212, end: 20081226

REACTIONS (2)
  - CARDIO-RESPIRATORY ARREST [None]
  - INFECTION [None]
